FAERS Safety Report 8453842-X (Version None)
Quarter: 2012Q2

REPORT INFORMATION
  Report Type: 
  Country: None (occurrence: None)
  Receive Date: 20120620
  Receipt Date: 20120611
  Transmission Date: 20120825
  Serious: Yes (Hospitalization)
  Sender: FDA-Public Use
  Company Number: PHHY2012FR051061

PATIENT
  Age: 25 Year
  Sex: Female

DRUGS (7)
  1. ILARIS [Suspect]
     Indication: AUTOINFLAMMATORY DISEASE
     Dosage: 150 MG, UNK
     Dates: start: 20120306
  2. PREDNISONE TAB [Concomitant]
  3. OMEPRAZOLE [Concomitant]
  4. ACETAMINOPHEN [Concomitant]
  5. PLAQUENIL [Suspect]
     Dosage: 200 MG, UNK
  6. ILARIS [Suspect]
     Dosage: 150 MG, UNK
     Dates: start: 20120420, end: 20120515
  7. CALCIUM CARBONATE [Concomitant]

REACTIONS (6)
  - CHOLESTASIS [None]
  - ALANINE AMINOTRANSFERASE INCREASED [None]
  - GAMMA-GLUTAMYLTRANSFERASE INCREASED [None]
  - ASPARTATE AMINOTRANSFERASE INCREASED [None]
  - CYTOLYTIC HEPATITIS [None]
  - BLOOD ALKALINE PHOSPHATASE INCREASED [None]
